FAERS Safety Report 4361364-0 (Version None)
Quarter: 2004Q2

REPORT INFORMATION
  Report Type: 
  Country: None (occurrence: None)
  Receive Date: 20040519
  Receipt Date: 20040519
  Transmission Date: 20050107
  Serious: Yes (Other)
  Sender: FDA-Public Use
  Company Number: None

PATIENT
  Age: 30 Year
  Sex: Female

DRUGS (2)
  1. CELEXA [Suspect]
     Indication: DEPRESSION
     Dosage: 40 MG DAILY
     Dates: start: 20031211, end: 20040216
  2. ZOLOFT [Suspect]
     Indication: DEPRESSION
     Dosage: 100 MG DAIL
     Dates: start: 20040215, end: 20040511

REACTIONS (4)
  - AGITATION [None]
  - ANXIETY [None]
  - DEPERSONALISATION [None]
  - VOMITING [None]
